FAERS Safety Report 14034290 (Version 4)
Quarter: 2017Q4

REPORT INFORMATION
  Report Type: Spontaneous
  Country: US (occurrence: US)
  Receive Date: 20171003
  Receipt Date: 20171130
  Transmission Date: 20180321
  Serious: Yes (Hospitalization, Other)
  Sender: FDA-Public Use
  Company Number: US-LUNDBECK-DKLU2037816

PATIENT
  Age: 67 Year
  Sex: Female

DRUGS (5)
  1. NORTHERA [Suspect]
     Active Substance: DROXIDOPA
     Indication: ORTHOSTATIC HYPOTENSION
     Route: 048
     Dates: start: 20170923
  2. MIDODRINE [Concomitant]
     Active Substance: MIDODRINE
     Indication: PRODUCT USED FOR UNKNOWN INDICATION
     Route: 065
  3. FLUDROCORTISONE [Suspect]
     Active Substance: FLUDROCORTISONE
     Indication: PRODUCT USED FOR UNKNOWN INDICATION
     Route: 065
  4. NORTHERA [Suspect]
     Active Substance: DROXIDOPA
     Indication: AUTONOMIC NEUROPATHY
     Dosage: TITRATION COMPLETE
     Route: 048
     Dates: start: 20170903
  5. NORTHERA [Suspect]
     Active Substance: DROXIDOPA
     Indication: SYNCOPE
     Route: 065

REACTIONS (20)
  - Condition aggravated [Unknown]
  - Oesophageal disorder [Unknown]
  - Fall [Unknown]
  - Hypotension [Unknown]
  - Vomiting [Unknown]
  - Head injury [Unknown]
  - Blood potassium decreased [Unknown]
  - Fatigue [Unknown]
  - Syncope [Unknown]
  - Nausea [Unknown]
  - Hip fracture [Unknown]
  - Nervousness [Unknown]
  - Dizziness [Unknown]
  - Joint injury [Unknown]
  - Limb injury [Unknown]
  - Immobile [Unknown]
  - Arthralgia [Unknown]
  - Ligament sprain [Unknown]
  - Tremor [Unknown]
  - Atrophy [Unknown]

NARRATIVE: CASE EVENT DATE: 2017
